FAERS Safety Report 4639624-5 (Version None)
Quarter: 2005Q2

REPORT INFORMATION
  Report Type: 
  Country: None (occurrence: None)
  Receive Date: 20050325
  Receipt Date: 20041129
  Transmission Date: 20051028
  Serious: No
  Sender: FDA-Public Use
  Company Number: USA041184651

PATIENT
  Age: 75 Year
  Sex: Female
  Weight: 46 kg

DRUGS (4)
  1. FORTEO [Suspect]
     Indication: OSTEOPOROSIS
     Dosage: 20 UG/1 DAY
     Dates: start: 20040430
  2. RALOXIFENE HCL [Suspect]
     Indication: OSTEOPOROSIS
     Dosage: 60 MG/1DAY
     Dates: start: 20000101, end: 20040701
  3. CALCIUM GLUCONATE [Concomitant]
  4. MULTI-VITAMINS [Concomitant]

REACTIONS (5)
  - BLOOD CHOLESTEROL INCREASED [None]
  - BONE DENSITY DECREASED [None]
  - DYSGEUSIA [None]
  - ERYTHEMA [None]
  - THIRST [None]
